FAERS Safety Report 4463855-0 (Version None)
Quarter: 2004Q3

REPORT INFORMATION
  Report Type: 
  Country: None (occurrence: None)
  Receive Date: 20040929
  Receipt Date: 20040916
  Transmission Date: 20050211
  Serious: Yes (Hospitalization, Other)
  Sender: FDA-Public Use
  Company Number: 2004004481

PATIENT
  Age: 33 Year
  Sex: Female

DRUGS (3)
  1. RELPAX [Suspect]
     Indication: MIGRAINE WITHOUT AURA
     Dosage: ORAL
     Route: 048
     Dates: end: 20040101
  2. PROPOXYPHENE HCL [Concomitant]
  3. IBUPROFEN [Concomitant]

REACTIONS (8)
  - ARTERIAL STENOSIS [None]
  - EAR PAIN [None]
  - FEELING HOT [None]
  - HYPOAESTHESIA [None]
  - MALAISE [None]
  - MUSCULOSKELETAL STIFFNESS [None]
  - PAIN IN JAW [None]
  - REFUSAL OF TREATMENT BY PATIENT [None]
